FAERS Safety Report 6909651-3 (Version None)
Quarter: 2010Q3

REPORT INFORMATION
  Report Type: 
  Country: None (occurrence: None)
  Receive Date: 20100805
  Receipt Date: 20100727
  Transmission Date: 20110219
  Serious: Yes (Other)
  Sender: FDA-Public Use
  Company Number: US-GENENTECH-264815

PATIENT
  Sex: Female

DRUGS (4)
  1. RITUXIMAB [Suspect]
     Indication: ANTI-NEUTROPHIL CYTOPLASMIC ANTIBODY POSITIVE VASCULITIS
     Dosage: UNK
     Route: 065
     Dates: start: 20061103
  2. RITUXIMAB [Suspect]
     Dosage: UNK
     Route: 065
     Dates: start: 20061110
  3. RITUXIMAB [Suspect]
     Dosage: UNK
     Route: 065
     Dates: start: 20061117
  4. RITUXIMAB [Suspect]
     Dosage: UNK
     Route: 065
     Dates: start: 20061124

REACTIONS (1)
  - MALIGNANT MELANOMA [None]
